FAERS Safety Report 5440891-9 (Version None)
Quarter: 2007Q3

REPORT INFORMATION
  Report Type: 
  Country: None (occurrence: None)
  Receive Date: 20070831
  Receipt Date: 20070822
  Transmission Date: 20080115
  Serious: Yes (Other)
  Sender: FDA-Public Use
  Company Number: US-PFIZER INC-2007071492

PATIENT
  Sex: Male
  Weight: 82.727 kg

DRUGS (1)
  1. CHANTIX [Suspect]
     Dates: start: 20070501, end: 20070808

REACTIONS (3)
  - DIZZINESS [None]
  - HYPOTHYROIDISM [None]
  - LETHARGY [None]
